FAERS Safety Report 10716455 (Version 1)
Quarter: 2015Q1

REPORT INFORMATION
  Report Type: Spontaneous
  Country: US (occurrence: US)
  Receive Date: 20150116
  Receipt Date: 20150116
  Transmission Date: 20150721
  Serious: Yes (Other)
  Sender: FDA-Public Use
  Company Number: US-BAYER-2015-002962

PATIENT
  Age: 24 Year
  Sex: Female

DRUGS (1)
  1. MIRENA [Suspect]
     Active Substance: LEVONORGESTREL
     Indication: CONTRACEPTION
     Dosage: UNK
     Route: 015
     Dates: start: 20141126, end: 20141211

REACTIONS (5)
  - Tremor [Recovered/Resolved]
  - Dyspareunia [None]
  - Genital haemorrhage [Not Recovered/Not Resolved]
  - Coordination abnormal [None]
  - Dizziness [Recovered/Resolved]

NARRATIVE: CASE EVENT DATE: 2014
